FAERS Safety Report 4307518-0 (Version None)
Quarter: 2004Q1

REPORT INFORMATION
  Report Type: 
  Country: None (occurrence: None)
  Receive Date: 20040226
  Receipt Date: 20040218
  Transmission Date: 20041129
  Serious: Yes (Death, Other)
  Sender: FDA-Public Use
  Company Number: 2004IC000032

PATIENT
  Age: 75 Year
  Sex: Female

DRUGS (3)
  1. FLUOROURACIL [Suspect]
     Indication: METASTASES TO LIVER
     Dosage: 1 GM; UNKNOWN; INTRA-ARTERIAL
     Route: 013
     Dates: start: 20021015, end: 20021020
  2. GRAN (FILGRASTIM) [Suspect]
     Indication: PANCYTOPENIA
     Dosage: 300 UG; UNKNOWN; SUBCUTANEOUS
     Route: 058
     Dates: start: 20021027, end: 20021102
  3. CISPLATIN [Concomitant]

REACTIONS (7)
  - ACUTE RESPIRATORY DISTRESS SYNDROME [None]
  - DISSEMINATED INTRAVASCULAR COAGULATION [None]
  - LUNG DISORDER [None]
  - METASTASES TO LIVER [None]
  - PANCYTOPENIA [None]
  - PYREXIA [None]
  - TUMOUR MARKER INCREASED [None]
